FAERS Safety Report 5888400-4 (Version None)
Quarter: 2008Q3

REPORT INFORMATION
  Report Type: 
  Country: None (occurrence: None)
  Receive Date: 20080918
  Receipt Date: 20080912
  Transmission Date: 20090109
  Serious: Yes (Hospitalization, Other)
  Sender: FDA-Public Use
  Company Number: GB-PFIZER INC-2008073105

PATIENT
  Age: 35 Year
  Sex: Female

DRUGS (1)
  1. FLUCONAZOLE [Suspect]
     Route: 048

REACTIONS (1)
  - DRUG ERUPTION [None]
